FAERS Safety Report 7980275-2 (Version None)
Quarter: 2011Q4

REPORT INFORMATION
  Report Type: 
  Country: None (occurrence: None)
  Receive Date: 20111212
  Receipt Date: 20111128
  Transmission Date: 20120403
  Serious: Yes (Hospitalization)
  Sender: FDA-Public Use
  Company Number: 2011AP002879

PATIENT
  Age: 76 Year
  Sex: Female

DRUGS (10)
  1. FUROSEMIDE [Concomitant]
  2. LEVOFLOXACIN [Suspect]
     Indication: URINARY TRACT INFECTION
     Dosage: 500MG;QD;PO
     Route: 048
     Dates: start: 20111120, end: 20111123
  3. POTASSIUM CANRENOATE [Concomitant]
  4. LACTITOL [Concomitant]
  5. NEVIRAPINE [Concomitant]
  6. DIDANOSINE [Concomitant]
  7. CILOSTAZOL [Concomitant]
  8. LAMIVUDINE [Concomitant]
  9. ASPIRIN [Concomitant]
  10. RABEPRAZOLE SODIUM [Concomitant]

REACTIONS (1)
  - GRAND MAL CONVULSION [None]
